FAERS Safety Report 11863288 (Version 2)
Quarter: 2016Q1

REPORT INFORMATION
  Report Type: Spontaneous
  Country: SI (occurrence: SI)
  Receive Date: 20151223
  Receipt Date: 20160226
  Transmission Date: 20160526
  Serious: Yes (Hospitalization, Other)
  Sender: FDA-Public Use
  Company Number: SI-BAYER-2015-487449

PATIENT
  Age: 22 Year
  Sex: Female

DRUGS (1)
  1. JAYDESS [Suspect]
     Active Substance: LEVONORGESTREL
     Dosage: 14 MCG/24HR, CONT
     Route: 015
     Dates: start: 2015

REACTIONS (7)
  - Abdominal adhesions [None]
  - Inflammation [None]
  - Appendicitis [None]
  - Peritonitis [None]
  - Acute abdomen [None]
  - Pneumococcal infection [None]
  - Tubo-ovarian abscess [None]
